FAERS Safety Report 14608400 (Version 1)
Quarter: 2018Q1

REPORT INFORMATION
  Report Type: Spontaneous
  Country: US (occurrence: US)
  Receive Date: 20180306
  Receipt Date: 20180306
  Transmission Date: 20180509
  Serious: No
  Sender: FDA-Public Use
  Company Number: None

PATIENT
  Age: 20 Year
  Sex: Female
  Weight: 65.77 kg

DRUGS (1)
  1. NEXPLANON [Suspect]
     Active Substance: ETONOGESTREL

REACTIONS (8)
  - Glucose tolerance impaired [None]
  - Hair growth abnormal [None]
  - Depression [None]
  - Menorrhagia [None]
  - Menstruation irregular [None]
  - Anxiety [None]
  - Polycystic ovaries [None]
  - Weight increased [None]
